FAERS Safety Report 6536574-4 (Version None)
Quarter: 2010Q1

REPORT INFORMATION
  Report Type: 
  Country: None (occurrence: None)
  Receive Date: 20100113
  Receipt Date: 20100104
  Transmission Date: 20100710
  Serious: Yes (Hospitalization, Other)
  Sender: FDA-Public Use
  Company Number: PHEH2008US01226

PATIENT
  Sex: Female

DRUGS (41)
  1. AREDIA [Suspect]
     Indication: METASTASES TO BONE
     Dosage: 90 MG IV OVER 2 HOURS
     Dates: start: 19960501, end: 20020101
  2. ZOMETA [Suspect]
     Dosage: UNK
     Dates: end: 20020101
  3. COUMADIN [Concomitant]
  4. THALOMID [Concomitant]
     Dosage: 50 MG, QD
     Route: 048
  5. AXID [Concomitant]
     Dosage: 150 MG, BID
     Route: 048
  6. BACTRIM [Concomitant]
  7. CELEBREX [Concomitant]
     Dosage: 200 MG, QD
  8. DEXAMETHASONE [Concomitant]
     Dosage: UNK
     Dates: start: 19950101, end: 19980501
  9. TOPROL-XL [Concomitant]
  10. MICARDIS [Concomitant]
  11. ACIPHEX [Concomitant]
  12. BUMETANIDE [Concomitant]
  13. POTASSIUM CHLORIDE [Concomitant]
  14. CLINDAMYCIN [Concomitant]
  15. VICODIN ES [Concomitant]
     Indication: PAIN
     Dosage: UNK
     Dates: start: 20080213
  16. SALINE [Concomitant]
     Dosage: UNK
  17. PEN-VEE K [Concomitant]
     Dosage: 500 MG, QID
     Dates: start: 20080225, end: 20080304
  18. AUGMENTIN [Concomitant]
     Dosage: 875 , BID
     Dates: start: 20080304
  19. LORAZEPAM [Concomitant]
     Dosage: UNK
  20. AMOXI [Concomitant]
     Dosage: UNK
  21. ANESTHETICS NOS [Concomitant]
     Dosage: UNK
  22. CARBOCAINE [Concomitant]
  23. AMBIEN [Concomitant]
     Dosage: 10 MG, BY MOUTH, AT BEDTIME AS NEEDED
     Dates: start: 20000404
  24. PROPOXYPHENE HCL AND ACETAMINOPHEN [Concomitant]
     Dosage: 650 MG TABS, BY MOUTH, EVERY 4 HOURS AS NEEDED FOR PAIN
     Dates: start: 20000528
  25. VIOXX [Concomitant]
     Dosage: 25 MG, BY MOUTH, DAILY
     Dates: start: 20000629
  26. ACCUPRIL [Concomitant]
     Dosage: TAKE 1 TAB BY MOUTH EVERY DAY
     Dates: start: 20011002
  27. ALLEGRA [Concomitant]
     Dosage: TAKE 1 A DAY AS DIRECTED
     Dates: start: 20010301
  28. ALBUTEROL [Concomitant]
     Dosage: 2 PUFFS EVERY 4 TO 6 HOURS AS NEEDED
     Dates: start: 20010301
  29. LEVAQUIN [Concomitant]
     Dosage: 500 MG, 1 TAB BY MOUTH DAILY
     Dates: start: 20010309
  30. NORVASK [Concomitant]
     Dosage: 2.5 MG1 TAB BY MOUTH DAILY
     Dates: start: 20040623
  31. KLOR-CON [Concomitant]
     Dosage: 1 TAB BY MOUTH DAILY
     Dates: start: 20010723
  32. OXYCODONE HCL AND ACETAMINOPHEN [Concomitant]
     Dosage: 650 MG TABS
     Dates: start: 20030424
  33. METRONIDAZOLE [Concomitant]
     Dosage: 4 MG TABS, TAKE AS DIRECTED
     Dates: start: 20030812
  34. LANOXIN [Concomitant]
     Dosage: 250 MP, TAKE 1 TAB BY MOUTH DAILY
     Dates: start: 20040319
  35. PENICILLIN VK [Concomitant]
     Dosage: UNK
     Dates: start: 20040421
  36. LINCOCIN [Concomitant]
     Dosage: 300 MG/VIAL, USE ASDIRECTED
     Dates: start: 20040505
  37. AMOXICILLIN [Concomitant]
     Dosage: 500 MG, 2 CAPSULES, 2 TIMES DAILY
     Dates: start: 20040521
  38. AMCILL-S [Concomitant]
     Dosage: UNK
     Dates: start: 20040611
  39. ULTRACET [Concomitant]
     Dosage: 1 TAB BY MOUTH, EVERY 4 HOURS, AS NEEDED
     Dates: start: 20041201
  40. SULFAMETHOXAZOLE [Concomitant]
     Dosage: AS DIRECTED
     Dates: start: 20050426
  41. FUROSEMIDE [Concomitant]
     Dosage: AS DIRECDED
     Dates: start: 20050509

REACTIONS (63)
  - ABSCESS JAW [None]
  - ACTIVITIES OF DAILY LIVING IMPAIRED [None]
  - ANAEMIA [None]
  - ANXIETY [None]
  - ASTHMA [None]
  - ATRIAL FIBRILLATION [None]
  - BACK DISORDER [None]
  - BONE DEBRIDEMENT [None]
  - BONE DISORDER [None]
  - BONE MARROW TRANSPLANT [None]
  - BRUXISM [None]
  - CARDIAC FAILURE CONGESTIVE [None]
  - CARDIAC PACEMAKER INSERTION [None]
  - CATARACT [None]
  - CENTRAL VENOUS CATHETERISATION [None]
  - CHARLES BONNET SYNDROME [None]
  - COLECTOMY [None]
  - COLON CANCER [None]
  - CONFUSIONAL STATE [None]
  - DEAFNESS NEUROSENSORY [None]
  - DENTAL CARIES [None]
  - DENTAL FISTULA [None]
  - EAR NEOPLASM [None]
  - ENCEPHALOPATHY [None]
  - ENDODONTIC PROCEDURE [None]
  - FACE OEDEMA [None]
  - FISTULA REPAIR [None]
  - GASTRITIS [None]
  - GINGIVAL INFECTION [None]
  - GINGIVAL PAIN [None]
  - GINGIVAL SWELLING [None]
  - GINGIVAL ULCERATION [None]
  - GINGIVITIS [None]
  - HYPOAESTHESIA [None]
  - INJURY [None]
  - INTRACRANIAL ANEURYSM [None]
  - JAW FRACTURE [None]
  - JAW OPERATION [None]
  - MACROGLOSSIA [None]
  - MASS [None]
  - MASTICATION DISORDER [None]
  - MITRAL VALVE CALCIFICATION [None]
  - OSTEOMYELITIS [None]
  - OSTEONECROSIS [None]
  - OSTEOPENIA [None]
  - PAIN [None]
  - PAIN IN JAW [None]
  - PERIODONTAL DISEASE [None]
  - PHYSICAL DISABILITY [None]
  - PULMONARY EMBOLISM [None]
  - SEQUESTRECTOMY [None]
  - SICK SINUS SYNDROME [None]
  - SINUS OPERATION [None]
  - SINUSITIS [None]
  - SPEECH DISORDER [None]
  - SPINAL DISORDER [None]
  - SPINAL OSTEOARTHRITIS [None]
  - SUBARACHNOID HAEMORRHAGE [None]
  - TOOTH EXTRACTION [None]
  - TRANSIENT ISCHAEMIC ATTACK [None]
  - VENA CAVA FILTER INSERTION [None]
  - VERTIGO [None]
  - WOUND DRAINAGE [None]
